FAERS Safety Report 16536026 (Version 1)
Quarter: 2019Q3

REPORT INFORMATION
  Report Type: Spontaneous
  Country: US (occurrence: US)
  Receive Date: 20190705
  Receipt Date: 20190705
  Transmission Date: 20191004
  Serious: No
  Sender: FDA-Public Use
  Company Number: US-TEVA-2019-US-1069636

PATIENT
  Sex: Female

DRUGS (4)
  1. CILOSTAZOL TABLETS [Suspect]
     Active Substance: CILOSTAZOL
     Route: 065
  2. ASPIRIN. [Concomitant]
     Active Substance: ASPIRIN
     Dosage: 81 MG
  3. ATORVASTATIN [Concomitant]
     Active Substance: ATORVASTATIN
     Dosage: 20 MG
  4. CILOSTAZOL TABLETS [Suspect]
     Active Substance: CILOSTAZOL
     Indication: DEEP VEIN THROMBOSIS
     Route: 065
     Dates: start: 20190519

REACTIONS (3)
  - Diarrhoea [Unknown]
  - Faeces discoloured [Unknown]
  - Headache [Unknown]

NARRATIVE: CASE EVENT DATE: 20190625
